FAERS Safety Report 4499694-4 (Version None)
Quarter: 2004Q4

REPORT INFORMATION
  Report Type: 
  Country: None (occurrence: None)
  Receive Date: 20041108
  Receipt Date: 20041029
  Transmission Date: 20050328
  Serious: Yes (Death, Hospitalization, Other)
  Sender: FDA-Public Use
  Company Number: 2004-09-0804

PATIENT
  Age: 41 Year
  Sex: Female

DRUGS (5)
  1. TEMODAL [Suspect]
     Indication: GLIOMA
     Dosage: SEE IMAGE
     Route: 048
     Dates: end: 20040915
  2. TEGRETOL [Concomitant]
  3. ALEPSAL [Suspect]
  4. URBANYL [Concomitant]
  5. TOPIRMATE [Concomitant]

REACTIONS (4)
  - GLIOMA [None]
  - MEDICATION ERROR [None]
  - NEOPLASM PROGRESSION [None]
  - PANCYTOPENIA [None]
